FAERS Safety Report 20962235 (Version 1)
Quarter: 2022Q2

REPORT INFORMATION
  Report Type: Spontaneous
  Country: US (occurrence: US)
  Receive Date: 20220615
  Receipt Date: 20220615
  Transmission Date: 20220721
  Serious: No
  Sender: FDA-Public Use
  Company Number: US-NOVARTISTESTPH-NVSC2022US137467

PATIENT
  Age: 78 Year
  Sex: Female
  Weight: 73.48 kg

DRUGS (1)
  1. LEQVIO [Suspect]
     Active Substance: INCLISIRAN SODIUM
     Indication: Type V hyperlipidaemia
     Dosage: 284 MG, FIRST DOSE, THEN AT 3 MONTHS, THEN EVERY 6 MONTHS
     Route: 058
     Dates: start: 20220503

REACTIONS (1)
  - Diarrhoea [Recovering/Resolving]

NARRATIVE: CASE EVENT DATE: 20220530
